FAERS Safety Report 9246674 (Version 3)
Quarter: 2013Q3

REPORT INFORMATION
  Report Type: Spontaneous
  Country: ZA (occurrence: ZA)
  Receive Date: 20130422
  Receipt Date: 20130805
  Transmission Date: 20140515
  Serious: Yes (Hospitalization)
  Sender: FDA-Public Use
  Company Number: PHHY2013ZA036470

PATIENT
  Age: 66 Year
  Sex: Male

DRUGS (5)
  1. EXFORGE [Suspect]
     Indication: HYPERTENSION
     Dosage: 1 DF (160 MG VALS/10 MG AMLO), UNK
     Dates: start: 20121101
  2. ILLOVEX [Concomitant]
     Indication: DEPRESSION
     Dosage: UNK UKN, UNK
  3. GOUT [Concomitant]
     Indication: GOUT
     Dosage: UNK UKN, UNK
  4. PURICOS [Concomitant]
     Indication: GOUT
     Dosage: UNK UKN, UNK
  5. AMLOC [Concomitant]
     Indication: HYPERTENSION
     Dosage: UNK UKN, UNK

REACTIONS (7)
  - Throat tightness [Unknown]
  - Aphonia [Unknown]
  - Speech disorder [Unknown]
  - Reflux gastritis [Unknown]
  - Dysphagia [Unknown]
  - Dyspnoea [Unknown]
  - Cough [Recovered/Resolved]
